FAERS Safety Report 8549088-7 (Version None)
Quarter: 2012Q3

REPORT INFORMATION
  Report Type: 
  Country: None (occurrence: None)
  Receive Date: 20120730
  Receipt Date: 20120726
  Transmission Date: 20120928
  Serious: No
  Sender: FDA-Public Use
  Company Number: US-PFIZER INC-2012022532

PATIENT
  Sex: Male
  Weight: 117.91 kg

DRUGS (7)
  1. INVEGA [Concomitant]
     Indication: NEUROPATHY PERIPHERAL
     Dosage: 3 MG, 1X/DAY
  2. AMLODIPINE [Concomitant]
     Dosage: 10 MG, UNK
  3. LITHIUM [Concomitant]
     Dosage: UNK
  4. CHANTIX [Suspect]
     Dosage: UNK
     Route: 048
  5. RAMIPRIL [Concomitant]
     Indication: HYPERTENSION
     Dosage: 10 MG, UNK
  6. CHANTIX [Suspect]
     Indication: SMOKING CESSATION THERAPY
     Dosage: 0.5 MG, 1X/DAY
     Route: 048
     Dates: start: 20110101
  7. ALPRAZOLAM [Concomitant]
     Dosage: 1 MG, 3X/DAY

REACTIONS (2)
  - HEAD INJURY [None]
  - WEIGHT DECREASED [None]
